FAERS Safety Report 25818358 (Version 1)
Quarter: 2025Q3

REPORT INFORMATION
  Report Type: Spontaneous
  Country: US (occurrence: US)
  Receive Date: 20250918
  Receipt Date: 20250918
  Transmission Date: 20251021
  Serious: Yes (Other)
  Sender: AMGEN
  Company Number: US-AMGEN-USASP2025182481

PATIENT
  Age: 67 Year
  Sex: Male

DRUGS (8)
  1. PREDNISONE [Suspect]
     Active Substance: PREDNISONE
     Indication: Ophthalmic herpes zoster
     Route: 065
  2. PREDNISONE [Suspect]
     Active Substance: PREDNISONE
     Route: 065
  3. PREDNISONE [Suspect]
     Active Substance: PREDNISONE
     Route: 065
  4. PREDNISONE [Suspect]
     Active Substance: PREDNISONE
     Route: 065
  5. IBRUTINIB [Concomitant]
     Active Substance: IBRUTINIB
     Indication: Chronic lymphocytic leukaemia
  6. VALACYCLOVIR [Concomitant]
     Active Substance: VALACYCLOVIR HYDROCHLORIDE
     Dosage: 1 GRAM, TID
  7. FOSCARNET [Concomitant]
     Active Substance: FOSCARNET
  8. ACYCLOVIR [Concomitant]
     Active Substance: ACYCLOVIR
     Route: 040

REACTIONS (5)
  - Cataract [Unknown]
  - Ophthalmic herpes zoster [Unknown]
  - Chorioretinopathy [Unknown]
  - Drug ineffective for unapproved indication [Unknown]
  - Off label use [Unknown]
